FAERS Safety Report 6713514-6 (Version None)
Quarter: 2010Q2

REPORT INFORMATION
  Report Type: 
  Country: None (occurrence: None)
  Receive Date: 20100506
  Receipt Date: 20100425
  Transmission Date: 20101027
  Serious: Yes (Other)
  Sender: FDA-Public Use
  Company Number: US-SANOFI-AVENTIS-2010SA024336

PATIENT
  Age: 69 Year
  Sex: Female

DRUGS (2)
  1. LANTUS [Suspect]
     Indication: TYPE 2 DIABETES MELLITUS
     Dosage: 34 UNITS; 30 UNITS
     Route: 058
     Dates: start: 20060101
  2. OPTICLICK [Suspect]
     Indication: TYPE 2 DIABETES MELLITUS
     Dates: start: 20090501

REACTIONS (4)
  - CATARACT [None]
  - CATARACT OPERATION [None]
  - EYE HAEMORRHAGE [None]
  - VISION BLURRED [None]
